FAERS Safety Report 5838340-1 (Version None)
Quarter: 2008Q3

REPORT INFORMATION
  Report Type: 
  Country: None (occurrence: None)
  Receive Date: 20080808
  Receipt Date: 20080730
  Transmission Date: 20090109
  Serious: Yes (Hospitalization)
  Sender: FDA-Public Use
  Company Number: FR-ROCHE-578711

PATIENT
  Sex: Female

DRUGS (9)
  1. VESANOID [Suspect]
     Indication: DRUG USE FOR UNKNOWN INDICATION
     Route: 048
     Dates: start: 20080206, end: 20080212
  2. VESANOID [Suspect]
     Route: 048
     Dates: start: 20080213, end: 20080304
  3. DEPAKENE [Suspect]
     Indication: DRUG USE FOR UNKNOWN INDICATION
     Dosage: FROM D1 TO D7
     Route: 048
     Dates: start: 20080206, end: 20080209
  4. ARIMIDEX [Suspect]
     Indication: BREAST CANCER
     Dosage: 1 MG EVERY EVENING
     Route: 048
     Dates: start: 20040101
  5. VIDAZA [Suspect]
     Indication: DRUG USE FOR UNKNOWN INDICATION
     Dosage: FROM D1 TO D7
     Route: 058
     Dates: start: 20080206, end: 20080212
  6. ARANESP [Suspect]
     Indication: DRUG USE FOR UNKNOWN INDICATION
     Route: 048
     Dates: start: 20071123
  7. ARANESP [Suspect]
     Route: 048
     Dates: start: 20071221
  8. ZESTRIL [Concomitant]
  9. LOGROTON [Concomitant]

REACTIONS (2)
  - PHLEBITIS [None]
  - PULMONARY EMBOLISM [None]
